FAERS Safety Report 5389117-5 (Version None)
Quarter: 2007Q3

REPORT INFORMATION
  Report Type: 
  Country: None (occurrence: None)
  Receive Date: 20070713
  Receipt Date: 20070713
  Transmission Date: 20080115
  Serious: Yes (Death, Other)
  Sender: FDA-Public Use
  Company Number: None

PATIENT
  Age: 65 Year
  Sex: Male

DRUGS (12)
  1. DILANTIN KAPSEAL [Suspect]
     Indication: CONVULSION
  2. VANCOMYCIN [Concomitant]
  3. ZOSYN [Concomitant]
  4. TENOFOVIR [Concomitant]
  5. EMTRICITABINE [Concomitant]
  6. SUSTIVA [Concomitant]
  7. NORVASC [Concomitant]
  8. ASPIRIN [Concomitant]
  9. SUBCUTANEOUS HEPARIN [Concomitant]
  10. LOPRESSOR [Concomitant]
  11. NEUTROPHOS [Concomitant]
  12. ZOCOR [Concomitant]

REACTIONS (8)
  - ASPIRATION [None]
  - DRUG LEVEL INCREASED [None]
  - ENCEPHALITIS [None]
  - GENERAL PHYSICAL HEALTH DETERIORATION [None]
  - HERPES SIMPLEX [None]
  - ILL-DEFINED DISORDER [None]
  - PYREXIA [None]
  - RESPIRATORY FAILURE [None]
